FAERS Safety Report 4515583-0 (Version None)
Quarter: 2004Q3

REPORT INFORMATION
  Report Type: 
  Country: None (occurrence: None)
  Receive Date: 20040930
  Receipt Date: 20040730
  Transmission Date: 20050211
  Serious: Yes (Hospitalization)
  Sender: FDA-Public Use
  Company Number: US-JNJFOC-20040708263

PATIENT
  Sex: Female
  Weight: 63.5036 kg

DRUGS (2)
  1. DITROPAN XL [Suspect]
     Indication: POLLAKIURIA
     Dosage: 5 MG, 1 IN 1 DAY, ORAL
     Route: 048
     Dates: start: 20040701, end: 20040701
  2. LASIX [Concomitant]

REACTIONS (1)
  - PALPITATIONS [None]
